FAERS Safety Report 8418279-8 (Version None)
Quarter: 2012Q2

REPORT INFORMATION
  Report Type: 
  Country: None (occurrence: None)
  Receive Date: 20120607
  Receipt Date: 20120601
  Transmission Date: 20120825
  Serious: Yes (Hospitalization, Other)
  Sender: FDA-Public Use
  Company Number: AT-AMGEN-AUTSP2012034574

PATIENT
  Sex: Male

DRUGS (3)
  1. DOCETAXEL [Concomitant]
     Indication: PROSTATE CANCER METASTATIC
     Dosage: 75 MG/M2, UNK
  2. XGEVA [Suspect]
     Indication: PROPHYLAXIS
  3. FIRMAGON                           /01764801/ [Concomitant]
     Indication: PROSTATE CANCER METASTATIC

REACTIONS (1)
  - PULMONARY EMBOLISM [None]
